FAERS Safety Report 19693614 (Version 1)
Quarter: 2021Q3

REPORT INFORMATION
  Report Type: Spontaneous
  Country: CA (occurrence: CA)
  Receive Date: 20210812
  Receipt Date: 20210812
  Transmission Date: 20211014
  Serious: Yes (Death, Other)
  Sender: FDA-Public Use
  Company Number: CA-TEVA-2021-CA-1940290

PATIENT
  Age: 68 Year
  Sex: Male

DRUGS (4)
  1. PREDNISONE. [Suspect]
     Active Substance: PREDNISONE
     Indication: CONDITION AGGRAVATED
  2. LUTETIUM LU?177 VIPIVOTIDE TETRAXETAN. [Suspect]
     Active Substance: LUTETIUM LU-177 VIPIVOTIDE TETRAXETAN
     Indication: PROSTATE CANCER METASTATIC
  3. LUTETIUM LU?177 VIPIVOTIDE TETRAXETAN. [Suspect]
     Active Substance: LUTETIUM LU-177 VIPIVOTIDE TETRAXETAN
     Indication: HORMONE-REFRACTORY PROSTATE CANCER
     Dosage: RECEIVED THREE CYCLES IN 2 MONTHS INTERVAL
     Route: 065
     Dates: start: 201707
  4. PREDNISONE. [Suspect]
     Active Substance: PREDNISONE
     Indication: CHRONIC KIDNEY DISEASE
     Dosage: 1MG/KG DAILY
     Route: 065

REACTIONS (2)
  - Chronic kidney disease [Unknown]
  - Drug ineffective [Unknown]

NARRATIVE: CASE EVENT DATE: 2018
